FAERS Safety Report 21836617 (Version 1)
Quarter: 2023Q1

REPORT INFORMATION
  Report Type: Spontaneous
  Country: PT (occurrence: PT)
  Receive Date: 20230109
  Receipt Date: 20230109
  Transmission Date: 20230417
  Serious: Yes (Hospitalization, Other)
  Sender: FDA-Public Use
  Company Number: PT-ALKEM LABORATORIES LIMITED-PT-ALKEM-2022-11443

PATIENT
  Age: 49 Year
  Sex: Male

DRUGS (4)
  1. AMOXICILLIN\CLAVULANATE POTASSIUM [Suspect]
     Active Substance: AMOXICILLIN\CLAVULANATE POTASSIUM
     Indication: Tonsillitis
     Dosage: 875 MG+125MG EVERY 12 HOURS FOR 8  DAYS,
     Route: 065
  2. AMOXICILLIN\CLAVULANATE POTASSIUM [Suspect]
     Active Substance: AMOXICILLIN\CLAVULANATE POTASSIUM
     Dosage: 1 DOSAGE FORM, BID (EVERY 12 HOUR)
     Route: 065
  3. IBUPROFEN [Suspect]
     Active Substance: IBUPROFEN
     Indication: Tonsillitis
     Dosage: 600 MILLIGRAM, BID (EVERT 12 HOUR)
     Route: 065
  4. PERINDOPRIL [Suspect]
     Active Substance: PERINDOPRIL
     Indication: Hypertension
     Dosage: UNK
     Route: 065

REACTIONS (2)
  - Hypersensitivity [Recovered/Resolved]
  - Anaphylactic reaction [Recovered/Resolved]
